FAERS Safety Report 10747746 (Version 2)
Quarter: 2015Q1

REPORT INFORMATION
  Report Type: Spontaneous
  Country: US (occurrence: US)
  Receive Date: 20150129
  Receipt Date: 20150319
  Transmission Date: 20150721
  Serious: No
  Sender: FDA-Public Use
  Company Number: US-PFIZER INC-2015031800

PATIENT
  Age: 55 Year
  Sex: Male
  Weight: 111 kg

DRUGS (8)
  1. MORPHINE [Concomitant]
     Active Substance: MORPHINE
     Indication: PAIN IN EXTREMITY
     Dosage: 200 MG, 4X/DAY
  2. LEVEMIR [Concomitant]
     Active Substance: INSULIN DETEMIR
     Dosage: 25 DF, 1X/DAY
  3. HUMALOG [Concomitant]
     Active Substance: INSULIN LISPRO
  4. MORPHINE [Concomitant]
     Active Substance: MORPHINE
     Indication: ULCER
  5. GABAPENTIN. [Suspect]
     Active Substance: GABAPENTIN
     Indication: NEUROPATHY PERIPHERAL
     Dosage: UNK
  6. SIMVASTATIN. [Concomitant]
     Active Substance: SIMVASTATIN
     Indication: BLOOD CHOLESTEROL INCREASED
     Dosage: 40 MG, 1X/DAY
  7. XANAX [Concomitant]
     Active Substance: ALPRAZOLAM
     Indication: AFFECTIVE DISORDER
     Dosage: 2 MG, 2X/DAY
  8. LEVEMIR [Concomitant]
     Active Substance: INSULIN DETEMIR
     Dosage: 20 DF, 1X/DAY

REACTIONS (1)
  - Drug ineffective [Unknown]
